FAERS Safety Report 14543293 (Version 1)
Quarter: 2018Q1

REPORT INFORMATION
  Report Type: Spontaneous
  Country: US (occurrence: US)
  Receive Date: 20180216
  Receipt Date: 20180216
  Transmission Date: 20180509
  Serious: No
  Sender: FDA-Public Use
  Company Number: US-LANTHEUS-LMI-2017-00622

PATIENT
  Age: 57 Year
  Sex: Male
  Weight: 95 kg

DRUGS (1)
  1. DEFINITY [Suspect]
     Active Substance: PERFLUTREN
     Indication: ECHOCARDIOGRAM
     Dosage: 1 ML (2 ML DEFINITY PREPARED IN 8 ML DILUENT)
     Route: 040
     Dates: start: 20171201, end: 20171201

REACTIONS (1)
  - Muscle spasms [Recovered/Resolved]

NARRATIVE: CASE EVENT DATE: 20171201
